FAERS Safety Report 10063759 (Version 1)
Quarter: 2014Q2

REPORT INFORMATION
  Report Type: Spontaneous
  Country: FR (occurrence: FR)
  Receive Date: 20140408
  Receipt Date: 20140408
  Transmission Date: 20141212
  Serious: Yes (Hospitalization)
  Sender: FDA-Public Use
  Company Number: FR-ABBVIE-14P-056-1219088-00

PATIENT
  Age: 46 Year
  Sex: Male

DRUGS (3)
  1. NORVIR [Suspect]
     Indication: HIV INFECTION
     Route: 048
     Dates: start: 20130701, end: 20140225
  2. KIVEXA [Suspect]
     Indication: HIV INFECTION
     Dosage: 600/300MG
     Route: 048
     Dates: start: 20140106
  3. PREZISTA [Suspect]
     Indication: HIV INFECTION
     Route: 048
     Dates: start: 20130701, end: 20140225

REACTIONS (2)
  - Retinal artery occlusion [Not Recovered/Not Resolved]
  - Visual acuity reduced [Not Recovered/Not Resolved]
